FAERS Safety Report 4737947-2 (Version None)
Quarter: 2005Q3

REPORT INFORMATION
  Report Type: 
  Country: None (occurrence: None)
  Receive Date: 20050805
  Receipt Date: 20050728
  Transmission Date: 20060218
  Serious: Yes (Hospitalization, Other)
  Sender: FDA-Public Use
  Company Number: B0218546A

PATIENT
  Age: 17 Year
  Sex: Female

DRUGS (3)
  1. PAXIL [Suspect]
  2. THEODRENALINE HCL (THEODRENALINE HCL) [Suspect]
     Dosage: 5 MG
  3. PHLEBOTONIC DRUG NOS (PHLEBOTONIC DRUG NOS) [Suspect]

REACTIONS (16)
  - APHASIA [None]
  - CEREBRAL ARTERY THROMBOSIS [None]
  - CEREBRAL INFARCTION [None]
  - CLONUS [None]
  - DYSARTHRIA [None]
  - DYSGRAPHIA [None]
  - FACIAL PARESIS [None]
  - HAEMATOMA [None]
  - HEMIPLEGIA [None]
  - HYPERREFLEXIA [None]
  - INTENTIONAL MISUSE [None]
  - ISCHAEMIC STROKE [None]
  - MUSCLE SPASTICITY [None]
  - OVERDOSE [None]
  - URTICARIA [None]
  - VASOSPASM [None]
